FAERS Safety Report 19672648 (Version 1)
Quarter: 2021Q3

REPORT INFORMATION
  Report Type: Spontaneous
  Country: US (occurrence: US)
  Receive Date: 20210808
  Receipt Date: 20210808
  Transmission Date: 20211014
  Serious: No
  Sender: FDA-Public Use
  Company Number: US-SA-2021SA257743

PATIENT
  Age: 60 Year
  Sex: Female

DRUGS (2)
  1. HEPARIN SANOFI [Concomitant]
  2. DUPIXENT [Suspect]
     Active Substance: DUPILUMAB
     Indication: DERMATITIS ATOPIC
     Dosage: 300 MG/2ML, QOW
     Route: 058
     Dates: start: 202001

REACTIONS (2)
  - Weight increased [Unknown]
  - Inappropriate schedule of product administration [Unknown]

NARRATIVE: CASE EVENT DATE: 2020
